FAERS Safety Report 13490199 (Version 2)
Quarter: 2017Q2

REPORT INFORMATION
  Report Type: Spontaneous
  Country: PT (occurrence: PT)
  Receive Date: 20170427
  Receipt Date: 20170504
  Transmission Date: 20170830
  Serious: Yes (Hospitalization, Other)
  Sender: FDA-Public Use
  Company Number: PT-TEVA-763824ROM

PATIENT
  Age: 54 Year
  Sex: Female
  Weight: 71 kg

DRUGS (4)
  1. DOCETAXEL AUROVITAS [Suspect]
     Active Substance: DOCETAXEL
     Indication: BREAST CANCER
     Dosage: CONCENTRATE FOR SOLUTION FOR INFUSION, CONCENTRATE AND SOLVENT FOR INFUSION
     Route: 040
     Dates: start: 20170125, end: 20170308
  2. PERJETA [Suspect]
     Active Substance: PERTUZUMAB
     Indication: BREAST CANCER
     Dosage: CONCENTRATE FOR SOLUTION FOR INFUSION
     Route: 040
     Dates: start: 20170124, end: 20170308
  3. HERCEPTIN [Suspect]
     Active Substance: TRASTUZUMAB
     Indication: BREAST CANCER
     Dosage: POWDER FOR CONCENTRATE FOR SOLUTION FOR INFUSION
     Route: 040
     Dates: start: 20170125, end: 20170308
  4. VALDISPERT [Concomitant]
     Active Substance: HERBALS
     Indication: ANXIETY
     Route: 065

REACTIONS (5)
  - Septic shock [Recovering/Resolving]
  - Anaemia [Recovering/Resolving]
  - Blood albumin decreased [Recovering/Resolving]
  - Blood phosphorus decreased [Recovering/Resolving]
  - Pneumonia [Recovering/Resolving]

NARRATIVE: CASE EVENT DATE: 20170316
